FAERS Safety Report 23888320 (Version 1)
Quarter: 2024Q2

REPORT INFORMATION
  Report Type: Spontaneous
  Country: US (occurrence: None)
  Receive Date: 20240522
  Receipt Date: 20240522
  Transmission Date: 20240716
  Serious: Yes (Hospitalization)
  Sender: FDA-Public Use
  Company Number: None

PATIENT
  Age: 65 Year
  Sex: Male

DRUGS (13)
  1. AMBRISENTAN [Suspect]
     Active Substance: AMBRISENTAN
     Indication: Pulmonary hypertension
     Dosage: FREQUENCY : DAILY;?
     Route: 048
     Dates: start: 20230814
  2. POTASSIUM [Concomitant]
     Active Substance: POTASSIUM
  3. TORSEMIDE [Concomitant]
     Active Substance: TORSEMIDE
  4. FAMOTIDINE [Concomitant]
     Active Substance: FAMOTIDINE
  5. HYDROCODONE [Concomitant]
     Active Substance: HYDROCODONE
  6. ELIQUIS [Concomitant]
     Active Substance: APIXABAN
  7. SILDENAFIL [Concomitant]
     Active Substance: SILDENAFIL
  8. DIGOXIN [Concomitant]
     Active Substance: DIGOXIN
  9. VITAMIN D [Concomitant]
     Active Substance: VITAMIN D NOS
  10. UPTRAVI [Concomitant]
     Active Substance: SELEXIPAG
  11. SPIRONOLACTONE [Concomitant]
     Active Substance: SPIRONOLACTONE
  12. MAGNESIUM [Concomitant]
     Active Substance: MAGNESIUM
  13. COLCHICINE [Concomitant]
     Active Substance: COLCHICINE

REACTIONS (1)
  - Hypervolaemia [None]

NARRATIVE: CASE EVENT DATE: 20240522
